FAERS Safety Report 6306836-4 (Version None)
Quarter: 2009Q3

REPORT INFORMATION
  Report Type: 
  Country: None (occurrence: None)
  Receive Date: 20090811
  Receipt Date: 20090811
  Transmission Date: 20100115
  Serious: No
  Sender: FDA-Public Use
  Company Number: None

PATIENT
  Sex: Male

DRUGS (1)
  1. DIGOXIN [Suspect]
     Dosage: 0.25 MG TABLET
     Route: 048

REACTIONS (8)
  - ASTHENIA [None]
  - CHEST PAIN [None]
  - DECREASED APPETITE [None]
  - FEELING ABNORMAL [None]
  - FEELING HOT [None]
  - INSOMNIA [None]
  - PAIN [None]
  - ROAD TRAFFIC ACCIDENT [None]
